FAERS Safety Report 7221095-6 (Version None)
Quarter: 2011Q1

REPORT INFORMATION
  Report Type: 
  Country: None (occurrence: None)
  Receive Date: 20110112
  Receipt Date: 20110104
  Transmission Date: 20110831
  Serious: Yes (Other)
  Sender: FDA-Public Use
  Company Number: US-PFIZER INC-2011001628

PATIENT
  Sex: Female
  Weight: 50.34 kg

DRUGS (3)
  1. IMITREX [Concomitant]
     Indication: MIGRAINE
     Dosage: UNK
     Route: 048
  2. TRAMADOL [Concomitant]
     Indication: ARTHRITIS
     Dosage: 50 MG, UNK
  3. LYRICA [Suspect]
     Indication: PRURITUS
     Dosage: UNK
     Route: 048

REACTIONS (6)
  - IRRITABILITY [None]
  - PRURITUS [None]
  - INCORRECT DOSE ADMINISTERED [None]
  - SUICIDAL IDEATION [None]
  - WEIGHT INCREASED [None]
  - ANXIETY [None]
